FAERS Safety Report 12281118 (Version 10)
Quarter: 2017Q1

REPORT INFORMATION
  Report Type: Spontaneous
  Country: US (occurrence: US)
  Receive Date: 20160419
  Receipt Date: 20170215
  Transmission Date: 20170428
  Serious: Yes (Other)
  Sender: FDA-Public Use
  Company Number: US-PFIZER INC-2016206707

PATIENT
  Age: 74 Year
  Sex: Female
  Weight: 114.74 kg

DRUGS (6)
  1. IBRANCE [Suspect]
     Active Substance: PALBOCICLIB
     Dosage: 75 MG, CYCLIC (D 1-21 Q 28 DAYS)
     Route: 048
     Dates: start: 20160325, end: 201610
  2. IBRANCE [Suspect]
     Active Substance: PALBOCICLIB
     Dosage: 75 MG, CYCLIC (DAYS 1-14 Q21 DAYS)
     Route: 048
     Dates: start: 2016
  3. IBRANCE [Suspect]
     Active Substance: PALBOCICLIB
     Dosage: 100 MG, CYCLIC (D 1-21 Q 28 DAYS)
     Route: 048
     Dates: start: 20160325
  4. IBRANCE [Suspect]
     Active Substance: PALBOCICLIB
     Dosage: 75 MG, CYCLIC (DAYS 1-14 Q21 DAYS)
     Route: 048
     Dates: start: 20160325
  5. IBRANCE [Suspect]
     Active Substance: PALBOCICLIB
     Dosage: 75 MG, CYCLIC (DAYS 1-14 Q28 DAYS)
     Route: 048
     Dates: start: 20160325
  6. IBRANCE [Suspect]
     Active Substance: PALBOCICLIB
     Indication: BREAST CANCER METASTATIC
     Dosage: 125 MG, CYCLIC (DAYS 1-21 EVERY OTHER DAY Q28 DAYS) (1 EVERY OTHER DAY; 1 WEEK)
     Route: 048
     Dates: start: 20160325

REACTIONS (16)
  - Neoplasm progression [Recovering/Resolving]
  - Insomnia [Unknown]
  - Blood test abnormal [Unknown]
  - White blood cell count decreased [Unknown]
  - Asthenia [Not Recovered/Not Resolved]
  - Dyspnoea exertional [Unknown]
  - Dyspnoea [Unknown]
  - Fatigue [Not Recovered/Not Resolved]
  - Iron deficiency [Unknown]
  - Nausea [Unknown]
  - Pain [Unknown]
  - Malaise [Unknown]
  - Headache [Unknown]
  - Cough [Unknown]
  - Neutrophil count decreased [Unknown]
  - Somnolence [Unknown]

NARRATIVE: CASE EVENT DATE: 201611
